FAERS Safety Report 8418301-9 (Version None)
Quarter: 2012Q2

REPORT INFORMATION
  Report Type: 
  Country: None (occurrence: None)
  Receive Date: 20120323
  Receipt Date: 20110525
  Transmission Date: 20120825
  Serious: Yes (Other)
  Sender: FDA-Public Use
  Company Number: 163-21880-11022166

PATIENT
  Age: 79 Year
  Sex: Male

DRUGS (3)
  1. REVLIMID [Suspect]
     Indication: MULTIPLE MYELOMA
     Dosage: 15 MG, DAILY AS DIRECTED, PO ; 25 MG, DAYS 1-14 EVERY 21 DAYS, PO
     Route: 048
     Dates: start: 20110118
  2. REVLIMID [Suspect]
     Indication: MULTIPLE MYELOMA
     Dosage: 15 MG, DAILY AS DIRECTED, PO ; 25 MG, DAYS 1-14 EVERY 21 DAYS, PO
     Route: 048
     Dates: start: 20110301
  3. REVLIMID [Suspect]

REACTIONS (4)
  - RASH PRURITIC [None]
  - RASH ERYTHEMATOUS [None]
  - RASH MACULO-PAPULAR [None]
  - URINARY TRACT INFECTION [None]
